FAERS Safety Report 10722779 (Version 3)
Quarter: 2015Q1

REPORT INFORMATION
  Report Type: Spontaneous
  Country: JP (occurrence: JP)
  Receive Date: 20150120
  Receipt Date: 20150324
  Transmission Date: 20150721
  Serious: Yes (Hospitalization)
  Sender: FDA-Public Use
  Company Number: JP-BEH-2015047870

PATIENT
  Age: 5 Year
  Sex: Male
  Weight: 18.6 kg

DRUGS (12)
  1. HIZENTRA [Suspect]
     Active Substance: HUMAN IMMUNOGLOBULIN G
     Indication: PRIMARY IMMUNODEFICIENCY SYNDROME
     Dosage: DOSE 2G/10 ML.INFUSION RATE 10ML/H
     Route: 058
     Dates: start: 20141210
  2. HIZENTRA [Suspect]
     Active Substance: HUMAN IMMUNOGLOBULIN G
     Dates: start: 20150103
  3. HIZENTRA [Suspect]
     Active Substance: HUMAN IMMUNOGLOBULIN G
     Dosage: DOSE 2G/10 ML.INFUSION RATE 10ML/H
     Route: 058
     Dates: start: 20141203
  4. PULSMARIN A DS [Concomitant]
     Indication: BRONCHIECTASIS
     Route: 048
  5. SULFAMETHOXAZOLE AND TRIMETHOPRIM [Concomitant]
     Active Substance: SULFAMETHOXAZOLE\TRIMETHOPRIM
     Indication: INFECTION PROPHYLAXIS
     Route: 048
     Dates: start: 201410
  6. SINGULAIR [Concomitant]
     Active Substance: MONTELUKAST SODIUM
     Indication: ASTHMA
     Route: 048
  7. HIZENTRA [Suspect]
     Active Substance: HUMAN IMMUNOGLOBULIN G
     Dosage: DOSE 2G/10ML
     Route: 058
     Dates: start: 20141227
  8. ADOAIR 50 AEROSOL [Concomitant]
     Indication: ASTHMA
     Route: 055
  9. HIZENTRA [Suspect]
     Active Substance: HUMAN IMMUNOGLOBULIN G
     Dosage: DOSE: 2G/10ML. INFUSION RATE 10ML/H
     Route: 058
     Dates: start: 20141126
  10. HIZENTRA [Suspect]
     Active Substance: HUMAN IMMUNOGLOBULIN G
     Indication: HYPOGAMMAGLOBULINAEMIA
     Dosage: DOSE 2G/10ML
     Route: 058
     Dates: start: 20141218
  11. CARBOCISTEINE DS [Concomitant]
     Indication: BRONCHIECTASIS
     Route: 048
  12. CLARITHROMYCIN DS [Concomitant]
     Indication: INFECTION PROPHYLAXIS
     Route: 048

REACTIONS (5)
  - Meningitis aseptic [Recovered/Resolved]
  - Headache [Recovered/Resolved]
  - Pyrexia [Recovered/Resolved]
  - Nausea [Recovered/Resolved]
  - Vomiting [Recovered/Resolved]

NARRATIVE: CASE EVENT DATE: 201411
